FAERS Safety Report 7666044-1 (Version None)
Quarter: 2011Q3

REPORT INFORMATION
  Report Type: 
  Country: None (occurrence: None)
  Receive Date: 20110806
  Receipt Date: 20110525
  Transmission Date: 20111222
  Serious: No
  Sender: FDA-Public Use
  Company Number: US-ABBOTT-11P-163-0728183-00

PATIENT
  Sex: Female
  Weight: 62.652 kg

DRUGS (6)
  1. GABAPENTIN [Concomitant]
     Indication: BLADDER SPASM
  2. MULTIPLE DIFFERENT VITAMINS [Concomitant]
     Indication: PRODUCT USED FOR UNKNOWN INDICATION
  3. NIASPAN [Suspect]
     Indication: BLOOD TRIGLYCERIDES INCREASED
  4. ESTRASE [Concomitant]
     Indication: PRODUCT USED FOR UNKNOWN INDICATION
  5. NIASPAN [Suspect]
  6. SYNTHROID [Concomitant]
     Indication: NODULE

REACTIONS (3)
  - CYSTITIS INTERSTITIAL [None]
  - BLADDER PAIN [None]
  - BACK PAIN [None]
